FAERS Safety Report 6232980-6 (Version None)
Quarter: 2009Q2

REPORT INFORMATION
  Report Type: 
  Country: None (occurrence: None)
  Receive Date: 20090612
  Receipt Date: 20090604
  Transmission Date: 20091009
  Serious: Yes (Other)
  Sender: FDA-Public Use
  Company Number: CHPA2009US11144

PATIENT
  Sex: Female
  Weight: 65.8 kg

DRUGS (3)
  1. MAALOX ANTIACID / ANTIGAS MAX STR MULTI SYMPTOMS [Suspect]
     Indication: DYSPEPSIA
     Dosage: ORAL
     Route: 048
  2. MAALOX MS TOTAL STOMACH RELIEF (NCH)(BISMUTH SUBSALICYLATE) SUSPENSION [Suspect]
     Dosage: ORAL
     Route: 048
     Dates: start: 20090316
  3. MAALOX MS TOTAL STOMACH RELIEF (NCH)(BISMUTH SUBSALICYLATE) SUSPENSION [Suspect]
     Dosage: ORAL
     Route: 048
     Dates: start: 20090420

REACTIONS (4)
  - GASTROINTESTINAL HAEMORRHAGE [None]
  - INTENTIONAL DRUG MISUSE [None]
  - PLATELET COUNT DECREASED [None]
  - PRODUCT TASTE ABNORMAL [None]
